FAERS Safety Report 4876013-2 (Version None)
Quarter: 2006Q1

REPORT INFORMATION
  Report Type: 
  Country: None (occurrence: None)
  Receive Date: 20060109
  Receipt Date: 20050909
  Transmission Date: 20060701
  Serious: Yes (Hospitalization)
  Sender: FDA-Public Use
  Company Number: FR-SANOFI-SYNTHELABO-A02200502387

PATIENT
  Age: 80 Year
  Sex: Male
  Weight: 73 kg

DRUGS (8)
  1. PLAVIX [Suspect]
     Indication: DRUG USE FOR UNKNOWN INDICATION
     Route: 048
     Dates: start: 20020601, end: 20050801
  2. FLECAINIDE ACETATE [Suspect]
     Indication: DRUG USE FOR UNKNOWN INDICATION
     Route: 048
     Dates: start: 20020601
  3. FLECAINIDE ACETATE [Suspect]
     Route: 048
     Dates: end: 20050822
  4. ZOCOR [Suspect]
     Indication: DRUG USE FOR UNKNOWN INDICATION
     Route: 048
     Dates: start: 20020401, end: 20050801
  5. COVERSYL [Suspect]
     Indication: DRUG USE FOR UNKNOWN INDICATION
     Route: 048
     Dates: start: 20011201, end: 20040501
  6. COVERSYL [Suspect]
     Route: 048
     Dates: start: 20040501, end: 20050817
  7. TENORMIN [Suspect]
     Indication: DRUG USE FOR UNKNOWN INDICATION
     Route: 048
     Dates: start: 20011201, end: 20050812
  8. MEDICINALPRODUCT NOT SPECIFIED BY SENDER [Concomitant]

REACTIONS (4)
  - DYSPNOEA [None]
  - PULMONARY FIBROSIS [None]
  - PULMONARY HYPERTENSION [None]
  - RALES [None]
